FAERS Safety Report 6176237-0 (Version None)
Quarter: 2009Q2

REPORT INFORMATION
  Report Type: 
  Country: None (occurrence: None)
  Receive Date: 20090501
  Receipt Date: 20090423
  Transmission Date: 20091009
  Serious: Yes (Hospitalization)
  Sender: FDA-Public Use
  Company Number: A0781557A

PATIENT
  Age: 64 Year
  Sex: Female

DRUGS (10)
  1. LETAIRIS [Suspect]
     Indication: PULMONARY ARTERIAL HYPERTENSION
     Route: 048
     Dates: start: 20070701
  2. COUMADIN [Suspect]
  3. ASPIRIN [Suspect]
  4. REVATIO [Concomitant]
  5. REMODULIN [Concomitant]
  6. LANOXIN [Concomitant]
  7. AVAPRO [Concomitant]
  8. TOPROL-XL [Concomitant]
  9. LASIX [Concomitant]
  10. ALDACTONE [Concomitant]

REACTIONS (6)
  - COLONOSCOPY [None]
  - FLUID OVERLOAD [None]
  - HAEMORRHOIDAL HAEMORRHAGE [None]
  - HAEMORRHOIDS [None]
  - INTERNATIONAL NORMALISED RATIO INCREASED [None]
  - LOWER GASTROINTESTINAL HAEMORRHAGE [None]
